FAERS Safety Report 4986364-9 (Version None)
Quarter: 2006Q2

REPORT INFORMATION
  Report Type: 
  Country: None (occurrence: None)
  Receive Date: 20060428
  Receipt Date: 20060222
  Transmission Date: 20061013
  Serious: Yes (Other)
  Sender: FDA-Public Use
  Company Number: JP-JPN-A200600713

PATIENT
  Age: 33 Year
  Sex: Female
  Weight: 77 kg

DRUGS (6)
  1. PAXIL [Suspect]
     Indication: DEPRESSION
     Route: 048
     Dates: start: 20050615, end: 20060307
  2. TOLEDOMIN [Concomitant]
     Route: 048
     Dates: start: 20050615
  3. GASMOTIN [Concomitant]
     Indication: GASTRITIS
     Dosage: 15MG PER DAY
     Route: 048
     Dates: start: 20050615, end: 20050628
  4. MYSLEE [Concomitant]
     Indication: INSOMNIA
     Dosage: 10MG PER DAY
     Route: 048
     Dates: start: 20050615
  5. SEPAZON [Concomitant]
     Indication: DEPRESSION
     Dosage: 3MG PER DAY
     Route: 048
     Dates: start: 20050629
  6. TOLEDOMIN [Concomitant]
     Indication: DEPRESSION
     Route: 048

REACTIONS (5)
  - BLOOD TRIGLYCERIDES INCREASED [None]
  - DIABETES MELLITUS [None]
  - HYPERCHOLESTEROLAEMIA [None]
  - LIVER FUNCTION TEST ABNORMAL [None]
  - WEIGHT INCREASED [None]
